FAERS Safety Report 16283078 (Version 3)
Quarter: 2021Q3

REPORT INFORMATION
  Report Type: Spontaneous
  Country: US (occurrence: US)
  Receive Date: 20190507
  Receipt Date: 20210720
  Transmission Date: 20211014
  Serious: Yes (Hospitalization, Other)
  Sender: FDA-Public Use
  Company Number: US-ASTRAZENECA-2019SE60086

PATIENT
  Age: 17805 Day
  Sex: Male

DRUGS (49)
  1. NEXIUM [Suspect]
     Active Substance: ESOMEPRAZOLE MAGNESIUM
     Indication: GASTROOESOPHAGEAL REFLUX DISEASE
     Dosage: GENERIC
     Route: 065
     Dates: start: 201501, end: 2017
  2. PRILOSEC [Suspect]
     Active Substance: OMEPRAZOLE MAGNESIUM
     Indication: GASTROOESOPHAGEAL REFLUX DISEASE
     Route: 048
     Dates: start: 20060315, end: 20070924
  3. NAPROXEN. [Concomitant]
     Active Substance: NAPROXEN
     Indication: INFLAMMATION
     Dates: start: 201610
  4. CRESTOR [Concomitant]
     Active Substance: ROSUVASTATIN CALCIUM
  5. AUGMENTIN [Concomitant]
     Active Substance: AMOXICILLIN\CLAVULANATE POTASSIUM
  6. PREVACID [Suspect]
     Active Substance: LANSOPRAZOLE
     Indication: GASTROOESOPHAGEAL REFLUX DISEASE
     Route: 065
     Dates: start: 2015, end: 2019
  7. LIDOCAINE. [Concomitant]
     Active Substance: LIDOCAINE
  8. SODIUM BICARBONATE. [Concomitant]
     Active Substance: SODIUM BICARBONATE
  9. DEXTROSE. [Concomitant]
     Active Substance: DEXTROSE
  10. LOVAZA [Concomitant]
     Active Substance: OMEGA-3-ACID ETHYL ESTERS
  11. OMEGA?3 ACIDS [Concomitant]
     Active Substance: OMEGA-3 FATTY ACIDS
  12. PROTONIX [Suspect]
     Active Substance: PANTOPRAZOLE SODIUM
     Indication: GASTROOESOPHAGEAL REFLUX DISEASE
     Route: 065
     Dates: start: 200801, end: 201712
  13. PREVACID IV [Suspect]
     Active Substance: LANSOPRAZOLE
     Indication: GASTROOESOPHAGEAL REFLUX DISEASE
     Route: 065
     Dates: start: 200801, end: 201712
  14. PEPCID [Concomitant]
     Active Substance: FAMOTIDINE
  15. GABAPENTIN. [Concomitant]
     Active Substance: GABAPENTIN
  16. PNEUMOVAX 23 [Concomitant]
     Active Substance: PNEUMOCOCCAL VACCINE, POLYVALENT 23
  17. ZOSYN [Concomitant]
     Active Substance: PIPERACILLIN SODIUM\TAZOBACTAM SODIUM
  18. RELPAX [Concomitant]
     Active Substance: ELETRIPTAN HYDROBROMIDE
  19. CARBAMAZEPINE. [Concomitant]
     Active Substance: CARBAMAZEPINE
  20. LAMICTAL [Concomitant]
     Active Substance: LAMOTRIGINE
  21. FLAGYL [Concomitant]
     Active Substance: METRONIDAZOLE\METRONIDAZOLE HYDROCHLORIDE
  22. NEXIUM [Suspect]
     Active Substance: ESOMEPRAZOLE MAGNESIUM
     Indication: GASTROOESOPHAGEAL REFLUX DISEASE
     Route: 048
     Dates: start: 200801, end: 201712
  23. PROTONIX [Suspect]
     Active Substance: PANTOPRAZOLE SODIUM
     Indication: GASTROOESOPHAGEAL REFLUX DISEASE
     Dosage: GENERIC
     Route: 065
     Dates: start: 2017
  24. MILK OF MAGNESIA [Concomitant]
     Active Substance: MAGNESIUM HYDROXIDE
     Dates: start: 2018
  25. ALKA?SELTZER [Concomitant]
     Active Substance: ANHYDROUS CITRIC ACID\ASPIRIN\SODIUM BICARBONATE
     Dates: start: 2019
  26. IBUPROFEN. [Concomitant]
     Active Substance: IBUPROFEN
     Indication: PAIN
     Dates: start: 2015, end: 2020
  27. FLUTICASONE. [Concomitant]
     Active Substance: FLUTICASONE
  28. PRILOSEC [Suspect]
     Active Substance: OMEPRAZOLE MAGNESIUM
     Indication: GASTROOESOPHAGEAL REFLUX DISEASE
     Dosage: GENERIC
     Route: 065
     Dates: start: 20160721, end: 20170510
  29. ZANTAC [Concomitant]
     Active Substance: RANITIDINE HYDROCHLORIDE
  30. TUMS [Concomitant]
     Active Substance: CALCIUM CARBONATE
     Dates: start: 2017
  31. DIPHENDRAMINE [Concomitant]
  32. OXYCODONE [Concomitant]
     Active Substance: OXYCODONE
  33. REGLAN [Concomitant]
     Active Substance: METOCLOPRAMIDE HYDROCHLORIDE
  34. DULOXETINE. [Concomitant]
     Active Substance: DULOXETINE
  35. TRAZODONE [Concomitant]
     Active Substance: TRAZODONE HYDROCHLORIDE
  36. LISINOPRIL. [Concomitant]
     Active Substance: LISINOPRIL
  37. DICLOFENAC POTASSIUM/AMOXICILLIN [Concomitant]
  38. NICOTINE. [Concomitant]
     Active Substance: NICOTINE
  39. ONDANSETRON [Concomitant]
     Active Substance: ONDANSETRON
  40. NEXIUM [Suspect]
     Active Substance: ESOMEPRAZOLE MAGNESIUM
     Indication: GASTROOESOPHAGEAL REFLUX DISEASE
     Route: 048
     Dates: start: 2008, end: 201501
  41. TRAZODONE [Concomitant]
     Active Substance: TRAZODONE HYDROCHLORIDE
     Indication: ANTIDEPRESSANT THERAPY
     Dates: start: 20150821
  42. PERCOCET [Concomitant]
     Active Substance: ACETAMINOPHEN\OXYCODONE HYDROCHLORIDE
     Indication: PAIN
     Dates: start: 20150127
  43. VIOXX [Concomitant]
     Active Substance: ROFECOXIB
  44. TRAMADOL. [Concomitant]
     Active Substance: TRAMADOL
     Indication: PAIN
     Dates: start: 20170406
  45. CLONAZEPAM. [Concomitant]
     Active Substance: CLONAZEPAM
  46. AMITRIPTYLINE [Concomitant]
     Active Substance: AMITRIPTYLINE
  47. MENTHOL. [Concomitant]
     Active Substance: MENTHOL
  48. DEMEROL [Concomitant]
     Active Substance: MEPERIDINE HYDROCHLORIDE
  49. PERPHENAZINE. [Concomitant]
     Active Substance: PERPHENAZINE

REACTIONS (3)
  - Renal failure [Unknown]
  - Chronic kidney disease [Unknown]
  - Acute kidney injury [Not Recovered/Not Resolved]

NARRATIVE: CASE EVENT DATE: 20130822
